FAERS Safety Report 5254536-4 (Version None)
Quarter: 2007Q1

REPORT INFORMATION
  Report Type: 
  Country: None (occurrence: None)
  Receive Date: 20070302
  Receipt Date: 20070301
  Transmission Date: 20070707
  Serious: Yes (Death, Other)
  Sender: FDA-Public Use
  Company Number: US-BRISTOL-MYERS SQUIBB COMPANY-13697321

PATIENT
  Age: 62 Year
  Sex: Female

DRUGS (3)
  1. COUMADIN [Suspect]
  2. LEVAQUIN [Concomitant]
  3. HEPARIN [Concomitant]

REACTIONS (3)
  - CHEST PAIN [None]
  - DEATH [None]
  - INTERNATIONAL NORMALISED RATIO ABNORMAL [None]
